FAERS Safety Report 8976565 (Version 1)
Quarter: 2012Q4

REPORT INFORMATION
  Report Type: 
  Country: US (occurrence: US)
  Receive Date: 20121220
  Receipt Date: 20121220
  Transmission Date: 20130627
  Serious: Yes (Other)
  Sender: FDA-Public Use
  Company Number: CHPA2012US025316

PATIENT
  Age: 72 Year
  Sex: Female

DRUGS (4)
  1. MAALOX ADV MAXIMUM STRENGTH ANTACID/ANTIGAS [Suspect]
     Indication: DYSPEPSIA
     Dosage: 2-3 teaspoons, once or twice daily
     Route: 048
     Dates: start: 1997, end: 2011
  2. PREDNISONE [Suspect]
  3. RELAFEN [Suspect]
  4. CORGARD [Concomitant]

REACTIONS (11)
  - Pancreatitis [Recovered/Resolved]
  - Nerve injury [Not Recovered/Not Resolved]
  - Hypertension [Recovered/Resolved]
  - Intervertebral disc protrusion [Recovered/Resolved]
  - Gastric pH decreased [Recovered/Resolved]
  - Muscle disorder [Recovered/Resolved]
  - Pain in extremity [Recovered/Resolved]
  - Abdominal discomfort [Recovered/Resolved]
  - Concomitant disease aggravated [Recovered/Resolved]
  - Off label use [Unknown]
  - Incorrect drug administration duration [Unknown]
